FAERS Safety Report 16988963 (Version 1)
Quarter: 2019Q4

REPORT INFORMATION
  Report Type: Spontaneous
  Country: GB (occurrence: GB)
  Receive Date: 20191104
  Receipt Date: 20191104
  Transmission Date: 20200122
  Serious: Yes (Life-Threatening, Disabling, Other)
  Sender: FDA-Public Use
  Company Number: GB-US WORLDMEDS, LLC-E2B_00003143

PATIENT
  Age: 74 Year
  Sex: Female

DRUGS (1)
  1. SAFINAMIDE [Suspect]
     Active Substance: SAFINAMIDE
     Dates: start: 20191008

REACTIONS (3)
  - Paralysis [Recovered/Resolved]
  - Obstructive airways disorder [Recovered/Resolved]
  - Pharyngeal swelling [Unknown]

NARRATIVE: CASE EVENT DATE: 20191008
